FAERS Safety Report 4922329-0 (Version None)
Quarter: 2006Q1

REPORT INFORMATION
  Report Type: 
  Country: None (occurrence: None)
  Receive Date: 20060224
  Receipt Date: 20051011
  Transmission Date: 20060701
  Serious: Yes (Hospitalization)
  Sender: FDA-Public Use
  Company Number: US-MERCK-0510USA06881

PATIENT
  Age: 52 Year
  Sex: Female
  Weight: 126 kg

DRUGS (43)
  1. XALATAN [Concomitant]
     Indication: GLAUCOMA
     Route: 065
  2. VIOXX [Suspect]
     Indication: OSTEOARTHRITIS
     Route: 048
     Dates: start: 20001017, end: 20040101
  3. VIOXX [Suspect]
     Indication: ARTHRITIS
     Route: 048
     Dates: start: 20001017, end: 20040101
  4. LOTENSIN [Concomitant]
     Indication: HYPERTENSION
     Route: 065
     Dates: start: 19980101, end: 20050602
  5. LASIX [Concomitant]
     Indication: HYPERTENSION
     Route: 065
     Dates: start: 19950101, end: 20050602
  6. LASIX [Concomitant]
     Indication: CARDIAC FAILURE CONGESTIVE
     Route: 065
     Dates: start: 19950101, end: 20050602
  7. DOXEPIN HYDROCHLORIDE [Concomitant]
     Indication: MIGRAINE
     Route: 065
     Dates: start: 19990101
  8. ACIPHEX [Concomitant]
     Indication: GASTROOESOPHAGEAL REFLUX DISEASE
     Route: 065
  9. ZELNORM [Concomitant]
     Indication: GASTRIC DISORDER
     Route: 065
  10. ZELNORM [Concomitant]
     Indication: GASTROINTESTINAL DISORDER
     Route: 065
  11. TOPAMAX [Concomitant]
     Indication: MIGRAINE
     Route: 065
  12. SYNTHROID [Concomitant]
     Route: 065
  13. FIORICET TABLETS [Concomitant]
     Indication: HEADACHE
     Route: 065
  14. PRILOSEC [Concomitant]
     Indication: GASTROOESOPHAGEAL REFLUX DISEASE
     Route: 065
  15. TRAMADOL HYDROCHLORIDE [Concomitant]
     Route: 065
  16. DOMEBORO [Concomitant]
     Route: 065
  17. HYDROCODONE BITARTRATE [Concomitant]
     Indication: PAIN
     Route: 065
  18. IMITREX [Concomitant]
     Indication: MIGRAINE
     Route: 065
  19. PERCOCET [Concomitant]
     Indication: PAIN
     Route: 065
  20. LOPERAMIDE HYDROCHLORIDE [Concomitant]
     Indication: DIARRHOEA
     Route: 065
  21. PRAVACHOL [Concomitant]
     Indication: BLOOD CHOLESTEROL INCREASED
     Route: 065
  22. REGLAN [Concomitant]
     Indication: GASTROOESOPHAGEAL REFLUX DISEASE
     Route: 065
  23. GLUCOPHAGE [Concomitant]
     Indication: DIABETES MELLITUS
     Route: 065
  24. PHENERGAN [Concomitant]
     Indication: NAUSEA
     Route: 065
  25. ULTRAM [Concomitant]
     Indication: PAIN
     Route: 065
  26. NEURONTIN [Concomitant]
     Indication: CONVULSION
     Route: 065
  27. TYLENOL W/ CODEINE NO. 3 [Concomitant]
     Indication: PAIN
     Route: 065
  28. MIRALAX [Concomitant]
     Indication: CONSTIPATION
     Route: 065
  29. FERROUS SULFATE [Concomitant]
     Indication: MINERAL SUPPLEMENTATION
     Route: 065
  30. MAXALT [Concomitant]
     Route: 065
  31. DEXTROSE [Concomitant]
     Indication: DIABETES MELLITUS
     Route: 065
  32. CALCIUM CARBONATE [Concomitant]
     Indication: MINERAL SUPPLEMENTATION
     Route: 065
  33. K-DUR 10 [Concomitant]
     Indication: ELECTROLYTE SUBSTITUTION THERAPY
     Route: 065
  34. ZOCOR [Concomitant]
     Indication: BLOOD CHOLESTEROL INCREASED
     Route: 048
     Dates: start: 19970101, end: 20000101
  35. ASPIRIN [Concomitant]
     Indication: ANTICOAGULANT THERAPY
     Route: 065
  36. AUGMENTIN '125' [Concomitant]
     Route: 065
  37. DIFLUCAN [Concomitant]
     Route: 065
  38. ATENOLOL [Concomitant]
     Indication: HYPERTENSION
     Route: 065
  39. ATENOLOL [Concomitant]
     Indication: ANGINA PECTORIS
     Route: 065
  40. LEVAQUIN [Concomitant]
     Route: 065
  41. TESSALON [Concomitant]
     Route: 065
  42. HUMIBID [Concomitant]
     Route: 065
  43. CARMOL HC [Concomitant]
     Indication: SKIN DISORDER
     Route: 065

REACTIONS (16)
  - ARTHROPATHY [None]
  - ATELECTASIS [None]
  - ATRIAL FIBRILLATION [None]
  - BUNDLE BRANCH BLOCK LEFT [None]
  - CHEST DISCOMFORT [None]
  - DEEP VEIN THROMBOSIS [None]
  - DEPRESSION [None]
  - GASTRIC DISORDER [None]
  - HEPATIC STEATOSIS [None]
  - IRON DEFICIENCY ANAEMIA [None]
  - LIPOMA [None]
  - NON-CARDIAC CHEST PAIN [None]
  - SLEEP APNOEA SYNDROME [None]
  - TACHYCARDIA [None]
  - THROMBOSIS [None]
  - THYROID DISORDER [None]
